FAERS Safety Report 10641470 (Version 1)
Quarter: 2014Q4

REPORT INFORMATION
  Report Type: Spontaneous
  Country: US (occurrence: US)
  Receive Date: 20141209
  Receipt Date: 20141209
  Transmission Date: 20150529
  Serious: Yes (Death, Other)
  Sender: FDA-Public Use
  Company Number: US-GLAXOSMITHKLINE-US2014GSK033334

PATIENT
  Sex: Male

DRUGS (2)
  1. MEKINIST [Suspect]
     Active Substance: TRAMETINIB DIMETHYL SULFOXIDE
     Indication: METASTASES TO BONE
     Dosage: 2 MG, QD
     Route: 048
     Dates: start: 20140519, end: 20141115
  2. TAFINLAR [Suspect]
     Active Substance: DABRAFENIB MESYLATE
     Indication: METASTASES TO BONE
     Dosage: 100 MG, QD
     Route: 048
     Dates: start: 20140519, end: 20141115

REACTIONS (1)
  - Death [Fatal]
